FAERS Safety Report 6220302-6 (Version None)
Quarter: 2009Q2

REPORT INFORMATION
  Report Type: 
  Country: None (occurrence: None)
  Receive Date: 20090603
  Receipt Date: 20090519
  Transmission Date: 20091009
  Serious: Yes (Disabling)
  Sender: FDA-Public Use
  Company Number: WSDF_00795

PATIENT
  Sex: Female
  Weight: 70 kg

DRUGS (3)
  1. WINRHO SDF [Suspect]
     Indication: PROPHYLAXIS AGAINST RH ISOIMMUNISATION
     Dosage: (300 ?G TOTAL INTRAMUSCULAR)
     Route: 030
     Dates: start: 20090128, end: 20090128
  2. DIAZEPAM [Concomitant]
  3. FLUOXETINE HCL [Concomitant]

REACTIONS (3)
  - OEDEMA PERIPHERAL [None]
  - RASH GENERALISED [None]
  - URTICARIA [None]
